FAERS Safety Report 15550788 (Version 2)
Quarter: 2018Q4

REPORT INFORMATION
  Report Type: Spontaneous
  Country: BR (occurrence: BR)
  Receive Date: 20181025
  Receipt Date: 20181102
  Transmission Date: 20190205
  Serious: Yes (Other)
  Sender: FDA-Public Use
  Company Number: BR-ELI_LILLY_AND_COMPANY-BR201810009413

PATIENT
  Sex: Female

DRUGS (3)
  1. CYMBALTA [Suspect]
     Active Substance: DULOXETINE HYDROCHLORIDE
     Indication: PRODUCT USED FOR UNKNOWN INDICATION
     Dosage: UNK, UNKNOWN
     Route: 065
     Dates: start: 1998
  2. FORTEO [Suspect]
     Active Substance: TERIPARATIDE
     Indication: BONE FORMATION INCREASED
     Dosage: UNK, UNKNOWN
     Route: 065
     Dates: start: 20180420
  3. NOVALGINA [Concomitant]
     Active Substance: METAMIZOLE SODIUM
     Indication: PRODUCT USED FOR UNKNOWN INDICATION
     Dosage: UNK, UNKNOWN
     Route: 065

REACTIONS (13)
  - Intervertebral disc protrusion [Unknown]
  - Off label use [Unknown]
  - Gait disturbance [Unknown]
  - Suicidal ideation [Unknown]
  - Osteopenia [Unknown]
  - Nervousness [Unknown]
  - Graft complication [Unknown]
  - Osteitis [Unknown]
  - Pain [Unknown]
  - Osteoporosis [Unknown]
  - Affect lability [Recovering/Resolving]
  - Stress [Unknown]
  - Vertebral lesion [Unknown]
